FAERS Safety Report 24034461 (Version 5)
Quarter: 2024Q3

REPORT INFORMATION
  Report Type: Spontaneous
  Country: IT (occurrence: IT)
  Receive Date: 20240701
  Receipt Date: 20240710
  Transmission Date: 20241017
  Serious: No
  Sender: ROCHE
  Company Number: IT-ROCHE-3538929

PATIENT
  Age: 22 Year
  Sex: Female

DRUGS (1)
  1. EVRYSDI [Suspect]
     Active Substance: RISDIPLAM
     Indication: Spinal muscular atrophy
     Dosage: (6.7 ML) STRENGTH: 0.75 MG/ML
     Route: 048
     Dates: start: 202311

REACTIONS (3)
  - Product taste abnormal [Unknown]
  - No adverse event [Unknown]
  - Product dose omission issue [Unknown]
